FAERS Safety Report 22229004 (Version 1)
Quarter: 2023Q2

REPORT INFORMATION
  Report Type: Spontaneous
  Country: US (occurrence: None)
  Receive Date: 20230418
  Receipt Date: 20230418
  Transmission Date: 20230721
  Serious: Yes (Death)
  Sender: FDA-Public Use
  Company Number: None

PATIENT
  Age: 80 Year
  Sex: Male
  Weight: 72.12 kg

DRUGS (17)
  1. CAPECITABINE [Suspect]
     Active Substance: CAPECITABINE
     Indication: Colon cancer
     Dosage: FREQUENCY : TWICE A DAY;?
     Route: 048
  2. AMLODIPINE BESYLATE [Concomitant]
  3. ASCORBIC ACID [Concomitant]
  4. ASPIRIN [Concomitant]
  5. ATORVASTATIN [Concomitant]
  6. ECHINACEA [Concomitant]
  7. FLOMAX [Concomitant]
  8. FUROSEMIDE [Concomitant]
  9. GINSENG [Concomitant]
  10. GLIMEPIRIDE [Concomitant]
  11. LISINOPRIL [Concomitant]
  12. LYCOPENE [Concomitant]
  13. METFORMIN [Concomitant]
  14. NAPROXEN SODIUM [Concomitant]
  15. POTASSIUM CHLORIDE [Concomitant]
  16. VITAMIN B COMPLEX [Concomitant]
  17. VITAMIN D3 [Concomitant]

REACTIONS (1)
  - Death [None]
